FAERS Safety Report 4540730-4 (Version None)
Quarter: 2004Q4

REPORT INFORMATION
  Report Type: 
  Country: None (occurrence: None)
  Receive Date: 20041222
  Receipt Date: 20041202
  Transmission Date: 20050328
  Serious: Yes (Other)
  Sender: FDA-Public Use
  Company Number: GBS041216141

PATIENT
  Sex: Female

DRUGS (2)
  1. PROZAC [Suspect]
     Indication: DEPRESSION
  2. PAROXETINE HCL [Concomitant]

REACTIONS (21)
  - ALCOHOLISM [None]
  - DEPRESSION SUICIDAL [None]
  - DRUG ABUSER [None]
  - DRUG INEFFECTIVE [None]
  - DRY SKIN [None]
  - EMOTIONAL DISTRESS [None]
  - FAMILY STRESS [None]
  - FEAR [None]
  - FLASHBACK [None]
  - INTENTIONAL OVERDOSE [None]
  - INTENTIONAL SELF-INJURY [None]
  - MANIA [None]
  - MEMORY IMPAIRMENT [None]
  - MENSTRUAL DISORDER [None]
  - MENTAL DISORDER [None]
  - POSTOPERATIVE INFECTION [None]
  - RASH [None]
  - SOCIAL AVOIDANT BEHAVIOUR [None]
  - STERILISATION [None]
  - SUICIDE ATTEMPT [None]
  - WEIGHT DECREASED [None]
